FAERS Safety Report 10582762 (Version 1)
Quarter: 2014Q4

REPORT INFORMATION
  Report Type: Spontaneous
  Country: US (occurrence: US)
  Receive Date: 20141113
  Receipt Date: 20141113
  Transmission Date: 20150529
  Serious: Yes (Hospitalization)
  Sender: FDA-Public Use
  Company Number: US-MYLANLABS-2014M1009849

PATIENT

DRUGS (5)
  1. CLINDAMYCIN [Suspect]
     Active Substance: CLINDAMYCIN\CLINDAMYCIN PHOSPHATE
     Indication: JOINT INJURY
     Route: 065
  2. TUMS                               /00193601/ [Suspect]
     Active Substance: CALCIUM CARBONATE\MAGNESIUM CARBONATE\MAGNESIUM TRISILICATE
     Indication: GASTROOESOPHAGEAL REFLUX DISEASE
     Dosage: 7 G, QD
     Route: 065
  3. NAPROXEN. [Suspect]
     Active Substance: NAPROXEN
     Indication: JOINT INJURY
     Route: 065
  4. TUMS                               /00193601/ [Suspect]
     Active Substance: CALCIUM CARBONATE\MAGNESIUM CARBONATE\MAGNESIUM TRISILICATE
     Dosage: 14 G, QD
     Route: 048
  5. CLINDAMYCIN [Suspect]
     Active Substance: CLINDAMYCIN\CLINDAMYCIN PHOSPHATE
     Indication: OFF LABEL USE

REACTIONS (5)
  - Acute kidney injury [Recovering/Resolving]
  - Milk-alkali syndrome [Recovering/Resolving]
  - Hypercalcaemia [Recovering/Resolving]
  - Hypovolaemia [Recovering/Resolving]
  - Metabolic alkalosis [Recovering/Resolving]
